FAERS Safety Report 9789251 (Version 1)
Quarter: 2013Q4

REPORT INFORMATION
  Report Type: Spontaneous
  Country: DE (occurrence: DE)
  Receive Date: 20131230
  Receipt Date: 20131230
  Transmission Date: 20140711
  Serious: Yes (Other)
  Sender: FDA-Public Use
  Company Number: PHHY2013DE150279

PATIENT
  Age: 12 Year
  Sex: Female

DRUGS (4)
  1. TIMOX [Suspect]
     Indication: GRAND MAL CONVULSION
     Dosage: 1200 MG, PER DAY DIVIDED IN TO 2 DOSES
     Dates: start: 20121122
  2. TIMOX [Suspect]
     Dosage: 300 MG, SINGLE DOSE PER DAY
  3. OXCARBAZEPINE [Suspect]
     Indication: GRAND MAL CONVULSION
     Dosage: 450 MG, PER DAY
  4. LAMOTRIGINE [Concomitant]
     Dosage: 25 MG (37.5MG-0-37.5MG) DAILY

REACTIONS (8)
  - Formication [Unknown]
  - Concomitant disease progression [Unknown]
  - Insomnia [Unknown]
  - Irritability [Unknown]
  - Fatigue [Recovering/Resolving]
  - Petit mal epilepsy [Unknown]
  - Grand mal convulsion [Recovering/Resolving]
  - Drug effect incomplete [Recovering/Resolving]
